FAERS Safety Report 11460443 (Version 3)
Quarter: 2016Q2

REPORT INFORMATION
  Report Type: Spontaneous
  Country: US (occurrence: US)
  Receive Date: 20150904
  Receipt Date: 20160608
  Transmission Date: 20160815
  Serious: Yes (Other)
  Sender: FDA-Public Use
  Company Number: US-MDT-ADR-2015-01723

PATIENT
  Age: 46 Year
  Sex: Male

DRUGS (16)
  1. TIZANITDINE [Suspect]
     Active Substance: TIZANIDINE
  2. BUPROPION. [Suspect]
     Active Substance: BUPROPION
  3. ERGOCALCIFEROL. [Suspect]
     Active Substance: ERGOCALCIFEROL
  4. SUMATRIPTAN. [Suspect]
     Active Substance: SUMATRIPTAN
  5. BACLOFEN. [Suspect]
     Active Substance: BACLOFEN
  6. ASPIRIN. [Suspect]
     Active Substance: ASPIRIN
  7. BACLOFEN. [Suspect]
     Active Substance: BACLOFEN
     Route: 037
  8. ABILIFY [Suspect]
     Active Substance: ARIPIPRAZOLE
  9. TOPIRAMATE. [Suspect]
     Active Substance: TOPIRAMATE
  10. ATORVASTATIN [Suspect]
     Active Substance: ATORVASTATIN
  11. MYRBETRIQ [Suspect]
     Active Substance: MIRABEGRON
  12. NADOLOL. [Suspect]
     Active Substance: NADOLOL
  13. OMEPRAZOLE. [Suspect]
     Active Substance: OMEPRAZOLE
  14. OXYBUTYNIN [Suspect]
     Active Substance: OXYBUTYNIN
  15. DULOXETINE. [Suspect]
     Active Substance: DULOXETINE
  16. METADATE [Suspect]
     Active Substance: METHYLPHENIDATE HYDROCHLORIDE

REACTIONS (2)
  - Wound dehiscence [Recovered/Resolved]
  - Medical device site injury [Recovered/Resolved]

NARRATIVE: CASE EVENT DATE: 20150613
